FAERS Safety Report 6097966-3 (Version None)
Quarter: 2009Q1

REPORT INFORMATION
  Report Type: 
  Country: None (occurrence: None)
  Receive Date: 20090227
  Receipt Date: 20090210
  Transmission Date: 20090719
  Serious: Yes (Disabling, Other)
  Sender: FDA-Public Use
  Company Number: DE-ASTRAZENECA-2009PK00561

PATIENT
  Age: 18251 Day
  Sex: Male
  Weight: 95 kg

DRUGS (1)
  1. CRESTOR [Suspect]
     Indication: HYPERCHOLESTEROLAEMIA
     Route: 048
     Dates: start: 20090129, end: 20090203

REACTIONS (2)
  - HEADACHE [None]
  - VISUAL IMPAIRMENT [None]
